FAERS Safety Report 14158730 (Version 1)
Quarter: 2017Q4

REPORT INFORMATION
  Report Type: Spontaneous
  Country: PT (occurrence: PT)
  Receive Date: 20171106
  Receipt Date: 20171106
  Transmission Date: 20180321
  Serious: Yes (Other)
  Sender: FDA-Public Use
  Company Number: PT-AUROBINDO-AUR-APL-2017-43090

PATIENT
  Age: 64 Year
  Sex: Male

DRUGS (1)
  1. AMOXICILLIN. [Suspect]
     Active Substance: AMOXICILLIN
     Indication: SINUSITIS

REACTIONS (5)
  - Muscle twitching [Recovered/Resolved]
  - Clonus [Recovered/Resolved]
  - Neurotoxicity [Recovered/Resolved]
  - Clonic convulsion [Recovered/Resolved]
  - Dyskinesia [Recovered/Resolved]
